FAERS Safety Report 9494047 (Version 1)
Quarter: 2013Q3

REPORT INFORMATION
  Report Type: Spontaneous
  Country: BE (occurrence: None)
  Receive Date: 20130827
  Receipt Date: 20130827
  Transmission Date: 20140515
  Serious: Yes (Life-Threatening, Hospitalization)
  Sender: FDA-Public Use
  Company Number: 013-21880-13082224

PATIENT
  Age: 65 Year
  Sex: Male
  Weight: 73.3 kg

DRUGS (14)
  1. REVLIMID (LENALIDOMIDE) (CAPSULES) [Suspect]
     Indication: PLASMA CELL MYELOMA
     Dosage: 25 MG, D1-21, PO
     Route: 048
     Dates: start: 20120126, end: 20120215
  2. DEXAMETHASONE (DEXAMETHASONE) [Suspect]
     Indication: PLASMA CELL MYELOMA
     Dosage: DAYS 1, 8, 15, 22, UNKNOWN
     Dates: start: 20120126, end: 20120216
  3. CARFILZOMIB [Suspect]
     Indication: PLASMA CELL MYELOMA
     Dosage: DAYS, 1, 2,
     Dates: start: 20120126, end: 20120127
  4. AVELOX (MOXIFLOXACIN HYDROCHLORIDE) [Concomitant]
  5. CIPRAMIL (CITALOPRAM HYDROBROMIDE) [Concomitant]
  6. CIPROXINE (CIPROFLOXACIN) [Concomitant]
  7. DAFALGAN (PARACETAMOL) [Concomitant]
  8. DUROGESIC (FENTANYL) [Concomitant]
  9. FRAXIPARINE (HEPARIN-FRACTION, CALCIUM SALT) [Concomitant]
  10. LORAMET (LORMETAZEPAM) [Concomitant]
  11. OMEPRAZOLE (OMEPRAZOLE) [Concomitant]
  12. XANAX (ALPRAZOLAM) [Concomitant]
  13. ZOMETA (ZOLEDRONIC ACID) [Concomitant]
  14. ZOVIRAX (ACICLOVIR) [Concomitant]

REACTIONS (2)
  - Hypokalaemia [None]
  - Diarrhoea [None]
